FAERS Safety Report 15106140 (Version 1)
Quarter: 2018Q3

REPORT INFORMATION
  Report Type: Spontaneous
  Country: US (occurrence: US)
  Receive Date: 20180704
  Receipt Date: 20180704
  Transmission Date: 20181010
  Serious: Yes (Other)
  Sender: FDA-Public Use
  Company Number: US-ACCORD-068961

PATIENT
  Age: 43 Year
  Sex: Male
  Weight: 124 kg

DRUGS (15)
  1. DOCUSATE [Concomitant]
     Active Substance: DOCUSATE
  2. POLYSACCHARIDE?IRON COMPLEX [Concomitant]
  3. TACROLIMUS. [Interacting]
     Active Substance: TACROLIMUS
     Indication: IMMUNOSUPPRESSANT DRUG THERAPY
  4. ERGOCALCIFEROL. [Concomitant]
     Active Substance: ERGOCALCIFEROL
  5. INSULIN [Concomitant]
     Active Substance: INSULIN NOS
  6. ATORVASTATIN [Concomitant]
     Active Substance: ATORVASTATIN
  7. MYCOPHENOLIC ACID. [Concomitant]
     Active Substance: MYCOPHENOLIC ACID
     Indication: IMMUNOSUPPRESSANT DRUG THERAPY
  8. ACETYLSALICYLIC ACID [Concomitant]
     Active Substance: ASPIRIN
  9. OXYGEN. [Concomitant]
     Active Substance: OXYGEN
     Dosage: 10 L/ MIN OXYGEN
  10. OMEPRAZOLE. [Concomitant]
     Active Substance: OMEPRAZOLE
  11. PREDNISONE. [Concomitant]
     Active Substance: PREDNISONE
     Indication: IMMUNOSUPPRESSANT DRUG THERAPY
  12. OXYGEN. [Concomitant]
     Active Substance: OXYGEN
     Dosage: 8 L HIGH?FLOW, 10 L/ MIN OXYGEN
  13. OXYGEN. [Concomitant]
     Active Substance: OXYGEN
     Dosage: 8 L HIGH?FLOW
  14. TACROLIMUS. [Suspect]
     Active Substance: TACROLIMUS
     Indication: IMMUNOSUPPRESSANT DRUG THERAPY
     Dosage: 5 MG EVERY 12 HOURS, REDUCED TO 3 MG EVERY 12 HOURS, THEN INCREASED TO 9 MG EVERY 12 HOURS
  15. OXYCODONE/OXYCODONE HYDROCHLORIDE/OXYCODONE PECTINATE/OXYCODONE TEREPHTHALATE [Concomitant]

REACTIONS (5)
  - Prescribed overdose [Unknown]
  - Drug-induced liver injury [Recovered/Resolved]
  - Immunosuppressant drug level increased [Recovered/Resolved]
  - Herbal interaction [Unknown]
  - Drug interaction [Unknown]
